FAERS Safety Report 9269382 (Version 2)
Quarter: 2013Q2

REPORT INFORMATION
  Report Type: Spontaneous
  Country: NO (occurrence: NO)
  Receive Date: 20130503
  Receipt Date: 20130524
  Transmission Date: 20140414
  Serious: Yes (Hospitalization)
  Sender: FDA-Public Use
  Company Number: NO-JNJFOC-20130414688

PATIENT
  Age: 62 Year
  Sex: Male

DRUGS (2)
  1. SIMPONI [Suspect]
     Indication: RHEUMATOID ARTHRITIS
     Route: 058
     Dates: start: 20100511, end: 20120511
  2. NOVORAPID [Concomitant]
     Indication: DIABETES MELLITUS
     Dosage: DOSAGE REPORTED AS 3*4-5 IU
     Route: 065

REACTIONS (2)
  - Lymphadenopathy mediastinal [Recovered/Resolved]
  - Pulmonary congestion [Recovered/Resolved]
